FAERS Safety Report 5570756-3 (Version None)
Quarter: 2007Q4

REPORT INFORMATION
  Report Type: 
  Country: None (occurrence: None)
  Receive Date: 20071221
  Receipt Date: 20071214
  Transmission Date: 20080405
  Serious: Yes (Other)
  Sender: FDA-Public Use
  Company Number: GB-TYCO HEALTHCARE/MALLINCKRODT-T200701559

PATIENT

DRUGS (1)
  1. SODIUM IODIDE I 131 [Suspect]
     Indication: ISOTOPE THERAPY TO THYROID
     Dosage: UNK, SINGLE

REACTIONS (1)
  - HYPERPARATHYROIDISM PRIMARY [None]
